FAERS Safety Report 6054565-7 (Version None)
Quarter: 2009Q1

REPORT INFORMATION
  Report Type: 
  Country: None (occurrence: None)
  Receive Date: 20090127
  Receipt Date: 20090123
  Transmission Date: 20090719
  Serious: Yes (Other)
  Sender: FDA-Public Use
  Company Number: PHHY2008CH28168

PATIENT
  Age: 63 Year
  Sex: Female

DRUGS (11)
  1. RASILEZ [Suspect]
     Indication: HYPERTENSION
     Dosage: 150 MG/DAY
     Route: 048
     Dates: start: 20080901, end: 20081028
  2. TOREM [Concomitant]
     Dosage: 50 MG /DAY
  3. LOPIRIN ^BRISTOL-MYERS SQUIBB^ [Concomitant]
  4. PRAVASTATIN [Concomitant]
     Dosage: 40 MG/DAY
  5. MEPHANOL [Concomitant]
     Dosage: 150 MG/DAY
  6. FLUCTINE [Concomitant]
     Dosage: 20 MG/DAY
  7. LIVIAL [Concomitant]
     Dosage: 2.5 MG/DAY
  8. LEVEMIR [Concomitant]
  9. NOVORAPID [Concomitant]
  10. BENERVA [Concomitant]
     Dosage: 300 MG/DAY
  11. VITAMIN B-12 [Concomitant]
     Dosage: 1000 MCG/DAY

REACTIONS (4)
  - DYSPNOEA [None]
  - ELECTROCARDIOGRAM ABNORMAL [None]
  - ELECTROCARDIOGRAM QT PROLONGED [None]
  - ELECTROCARDIOGRAM ST SEGMENT ELEVATION [None]
